FAERS Safety Report 6217792-1 (Version None)
Quarter: 2009Q2

REPORT INFORMATION
  Report Type: 
  Country: None (occurrence: None)
  Receive Date: 20090608
  Receipt Date: 20090604
  Transmission Date: 20091009
  Serious: Yes (Other)
  Sender: FDA-Public Use
  Company Number: NL-JNJFOC-20090601781

PATIENT
  Sex: Female
  Weight: 80 kg

DRUGS (5)
  1. CONCERTA [Suspect]
     Indication: ATTENTION DEFICIT/HYPERACTIVITY DISORDER
     Route: 065
  2. CITALOPRAM HYDROBROMIDE [Concomitant]
     Route: 065
  3. LAMOTRIGINE SANDOZ [Concomitant]
     Route: 065
  4. ANTIDEPRESSANT [Concomitant]
     Route: 065
  5. UNSPECIFIED ORAL CONTRACEPTIVE [Concomitant]
     Route: 048

REACTIONS (2)
  - ABORTION SPONTANEOUS [None]
  - DRUG EXPOSURE DURING PREGNANCY [None]
